FAERS Safety Report 4472425-X (Version None)
Quarter: 2004Q3

REPORT INFORMATION
  Report Type: 
  Country: None (occurrence: None)
  Receive Date: 20040917
  Receipt Date: 20040719
  Transmission Date: 20050211
  Serious: No
  Sender: FDA-Public Use
  Company Number: US-JNJFOC-20040706089

PATIENT
  Age: 18 Year
  Sex: Female
  Weight: 58.9676 kg

DRUGS (5)
  1. ORTHO EVRA [Suspect]
     Indication: DYSMENORRHOEA
     Dosage: 1 DOSE(S), 6 IN 7 WEEK, TRANSDERMAL
     Route: 062
     Dates: start: 20030601
  2. MICARDIS [Concomitant]
  3. SYNTHROID [Concomitant]
  4. FLORINEF [Concomitant]
  5. IRON SUPPLEMENT (IRON) LIQUID [Concomitant]

REACTIONS (1)
  - METRORRHAGIA [None]
